FAERS Safety Report 18072259 (Version 1)
Quarter: 2020Q3

REPORT INFORMATION
  Report Type: Spontaneous
  Country: US (occurrence: US)
  Receive Date: 20200726
  Receipt Date: 20200726
  Transmission Date: 20201103
  Serious: No
  Sender: FDA-Public Use
  Company Number: None

PATIENT
  Sex: Female

DRUGS (1)
  1. SIMPONI [Suspect]
     Active Substance: GOLIMUMAB
     Indication: COLITIS
     Route: 058
     Dates: start: 201905

REACTIONS (5)
  - Nephrolithiasis [None]
  - Renal function test abnormal [None]
  - Peripheral swelling [None]
  - Weight increased [None]
  - Injection site erythema [None]
